FAERS Safety Report 9037930 (Version 2)
Quarter: 2013Q2

REPORT INFORMATION
  Report Type: Report from Study
  Country: GB (occurrence: GB)
  Receive Date: 20130129
  Receipt Date: 20130620
  Transmission Date: 20140414
  Serious: No
  Sender: FDA-Public Use
  Company Number: GB-MYLANLABS-2013S1001147

PATIENT
  Age: 16 Year
  Sex: Female

DRUGS (66)
  1. ONDANSETRON [Suspect]
     Indication: PROPHYLAXIS OF NAUSEA AND VOMITING
     Route: 042
     Dates: start: 20121007, end: 20121007
  2. ONDANSETRON [Suspect]
     Indication: PROPHYLAXIS OF NAUSEA AND VOMITING
     Dates: start: 20121017, end: 20121017
  3. ONDANSETRON [Suspect]
     Indication: PROPHYLAXIS OF NAUSEA AND VOMITING
     Dates: start: 20121018, end: 20121018
  4. ONDANSETRON [Suspect]
     Indication: PROPHYLAXIS OF NAUSEA AND VOMITING
     Dates: start: 20121019, end: 20121019
  5. ONDANSETRON [Suspect]
     Indication: PROPHYLAXIS OF NAUSEA AND VOMITING
     Route: 042
     Dates: start: 20120921, end: 20120924
  6. ONDANSETRON [Suspect]
     Indication: PROPHYLAXIS OF NAUSEA AND VOMITING
     Route: 042
     Dates: start: 20120924, end: 20120924
  7. ONDANSETRON [Suspect]
     Indication: PROPHYLAXIS OF NAUSEA AND VOMITING
     Dates: start: 20120925, end: 20120925
  8. ONDANSETRON [Suspect]
     Indication: PROPHYLAXIS OF NAUSEA AND VOMITING
     Dates: start: 20120926, end: 20120927
  9. ONDANSETRON [Suspect]
     Indication: PROPHYLAXIS OF NAUSEA AND VOMITING
     Dates: start: 20120927, end: 20120927
  10. APREPITANT [Suspect]
     Indication: PROPHYLAXIS OF NAUSEA AND VOMITING
     Route: 048
     Dates: start: 20121107, end: 20121107
  11. APREPITANT [Suspect]
     Indication: PROPHYLAXIS OF NAUSEA AND VOMITING
     Route: 048
     Dates: start: 20121108, end: 20121108
  12. APREPITANT [Suspect]
     Indication: PROPHYLAXIS OF NAUSEA AND VOMITING
     Route: 048
     Dates: start: 20121109, end: 20121109
  13. APREPITANT [Suspect]
     Indication: PROPHYLAXIS OF NAUSEA AND VOMITING
     Route: 048
     Dates: start: 20121017, end: 20121017
  14. APREPITANT [Suspect]
     Indication: PROPHYLAXIS OF NAUSEA AND VOMITING
     Route: 048
     Dates: start: 20121018, end: 20121018
  15. APREPITANT [Suspect]
     Indication: PROPHYLAXIS OF NAUSEA AND VOMITING
     Route: 048
     Dates: start: 20121019, end: 20121019
  16. APREPITANT [Suspect]
     Indication: PROPHYLAXIS OF NAUSEA AND VOMITING
     Route: 048
     Dates: start: 20120921, end: 20120921
  17. APREPITANT [Suspect]
     Indication: PROPHYLAXIS OF NAUSEA AND VOMITING
     Dates: start: 20120922, end: 20120922
  18. APREPITANT [Suspect]
     Indication: PROPHYLAXIS OF NAUSEA AND VOMITING
     Dates: start: 20120923, end: 20120923
  19. APREPITANT [Suspect]
     Indication: PROPHYLAXIS OF NAUSEA AND VOMITING
     Dates: start: 20121128, end: 20121128
  20. APREPITANT [Suspect]
     Indication: PROPHYLAXIS OF NAUSEA AND VOMITING
     Dates: start: 20121129, end: 20121129
  21. DEXAMETHASONE [Suspect]
     Indication: PROPHYLAXIS OF NAUSEA AND VOMITING
     Route: 042
     Dates: start: 20120921, end: 20120921
  22. DEXAMETHASONE [Suspect]
     Indication: PROPHYLAXIS OF NAUSEA AND VOMITING
     Route: 042
     Dates: start: 20120922, end: 20120922
  23. DEXAMETHASONE [Suspect]
     Indication: PROPHYLAXIS OF NAUSEA AND VOMITING
     Route: 042
     Dates: start: 20120923, end: 20120923
  24. DEXAMETHASONE [Suspect]
     Indication: PROPHYLAXIS OF NAUSEA AND VOMITING
     Route: 042
     Dates: start: 20120924, end: 20120924
  25. DOXORUBICIN [Suspect]
     Indication: CHEMOTHERAPY
     Dates: start: 20121017, end: 20121018
  26. DOXORUBICIN [Suspect]
     Indication: CHEMOTHERAPY
     Dates: start: 20120922, end: 20120923
  27. IFOSFAMIDE [Suspect]
     Indication: NEOPLASM MALIGNANT
     Route: 042
     Dates: start: 20121017, end: 20121219
  28. IFOSFAMIDE [Suspect]
     Indication: CHEMOTHERAPY
     Route: 042
     Dates: start: 20121017, end: 20121219
  29. IFOSFAMIDE [Suspect]
     Indication: NEOPLASM MALIGNANT
     Route: 042
     Dates: start: 20130921, end: 20120923
  30. IFOSFAMIDE [Suspect]
     Indication: CHEMOTHERAPY
     Route: 042
     Dates: start: 20130921, end: 20120923
  31. PLACEBO [Suspect]
     Indication: PROPHYLAXIS OF NAUSEA AND VOMITING
     Route: 048
     Dates: start: 20121107, end: 20121107
  32. PLACEBO [Suspect]
     Indication: PROPHYLAXIS OF NAUSEA AND VOMITING
     Route: 048
     Dates: start: 20121108, end: 20121108
  33. PLACEBO [Suspect]
     Indication: PROPHYLAXIS OF NAUSEA AND VOMITING
     Route: 048
     Dates: start: 20121109, end: 20121109
  34. PLACEBO [Suspect]
     Indication: PROPHYLAXIS OF NAUSEA AND VOMITING
     Route: 048
     Dates: start: 20121017, end: 20121017
  35. PLACEBO [Suspect]
     Indication: PROPHYLAXIS OF NAUSEA AND VOMITING
     Route: 048
     Dates: start: 20121018, end: 20121018
  36. PLACEBO [Suspect]
     Indication: PROPHYLAXIS OF NAUSEA AND VOMITING
     Route: 048
     Dates: start: 20121019, end: 20121019
  37. PLACEBO [Suspect]
     Indication: PROPHYLAXIS OF NAUSEA AND VOMITING
     Route: 048
     Dates: start: 20121021, end: 20121021
  38. PLACEBO [Suspect]
     Indication: PROPHYLAXIS OF NAUSEA AND VOMITING
     Route: 048
     Dates: start: 20120922, end: 20120922
  39. PLACEBO [Suspect]
     Indication: PROPHYLAXIS OF NAUSEA AND VOMITING
     Route: 048
     Dates: start: 20120923, end: 20120923
  40. PLACEBO [Suspect]
     Indication: PROPHYLAXIS OF NAUSEA AND VOMITING
     Route: 048
     Dates: start: 20121128, end: 20121128
  41. PLACEBO [Suspect]
     Indication: PROPHYLAXIS OF NAUSEA AND VOMITING
     Route: 048
     Dates: start: 20121129, end: 20121129
  42. ANAESTHETIC [Concomitant]
     Indication: ANAESTHESIA
     Route: 061
     Dates: start: 20121006, end: 20121016
  43. BUSCOPAN [Concomitant]
     Indication: PRODUCT USED FOR UNKNOWN INDICATION
     Dates: start: 20121005, end: 20121008
  44. CALCIUM CARBONATE [Concomitant]
     Indication: PRODUCT USED FOR UNKNOWN INDICATION
     Dates: start: 20121005, end: 20121009
  45. CIPROFLOXACIN [Concomitant]
     Indication: INFECTION
     Route: 048
     Dates: start: 20121030, end: 201211
  46. CIPROFLOXACIN [Concomitant]
     Indication: MUCOSAL INFLAMMATION
     Route: 048
     Dates: start: 20121030, end: 201211
  47. CO-AMOXICLAV [Concomitant]
     Indication: INFECTION
     Route: 048
     Dates: start: 20121030, end: 201211
  48. CO-AMOXICLAV [Concomitant]
     Indication: MUCOSAL INFLAMMATION
     Route: 048
     Dates: start: 20121030, end: 201211
  49. CODEINE [Concomitant]
     Indication: ANALGESIC THERAPY
     Route: 048
     Dates: start: 20121005, end: 20121005
  50. CODEINE PHOSPHATE [Concomitant]
     Indication: ANALGESIC THERAPY
     Route: 048
     Dates: start: 20121005, end: 20121005
  51. CODEINE PHOSPHATE [Concomitant]
     Indication: ANALGESIC THERAPY
     Route: 048
     Dates: start: 20120830
  52. CYCLIZINE [Concomitant]
     Indication: ANTIEMETIC SUPPORTIVE CARE
     Route: 048
     Dates: start: 20121017, end: 20121017
  53. CYCLIZINE [Concomitant]
     Indication: ANTIEMETIC SUPPORTIVE CARE
     Route: 048
     Dates: start: 20120923, end: 20120923
  54. FENTANYL [Concomitant]
     Indication: PAIN
     Dates: start: 20121030
  55. HEPARIN [Concomitant]
     Indication: ANTICOAGULANT THERAPY
     Route: 042
     Dates: start: 20120914
  56. HEPARIN [Concomitant]
     Indication: PRODUCT USED FOR UNKNOWN INDICATION
     Route: 042
     Dates: start: 20120914
  57. HYPROMELLOSE [Concomitant]
     Indication: PRODUCT USED FOR UNKNOWN INDICATION
     Route: 047
     Dates: start: 20121019
  58. MACROGOL [Concomitant]
     Indication: CONSTIPATION
     Route: 048
     Dates: start: 20120830, end: 201209
  59. MESNA [Concomitant]
     Indication: PROPHYLAXIS
     Route: 042
     Dates: start: 20121017, end: 20121019
  60. MESNA [Concomitant]
     Indication: PRODUCT USED FOR UNKNOWN INDICATION
     Dates: start: 20120921, end: 20120924
  61. MESNA [Concomitant]
     Indication: PROPHYLAXIS
     Route: 042
  62. NORETHINDRONE /00044901/ [Concomitant]
     Indication: MENSTRUAL DISORDER
     Route: 048
     Dates: start: 20120903
  63. OXYCODONE [Concomitant]
     Indication: PAIN
     Route: 048
     Dates: start: 20121122, end: 20121201
  64. OXYCODONE [Concomitant]
     Indication: PAIN
     Route: 042
     Dates: start: 20121030, end: 20121030
  65. PARACETAMOL [Concomitant]
     Indication: ANALGESIC THERAPY
     Route: 048
     Dates: start: 20121005, end: 20121006
  66. TEICOPLANIN [Concomitant]
     Indication: DEVICE RELATED INFECTION
     Route: 042
     Dates: start: 20120915, end: 20120920

REACTIONS (11)
  - Medical device complication [Unknown]
  - Constipation [Recovered/Resolved]
  - Haemoglobin decreased [Not Recovered/Not Resolved]
  - Diarrhoea [Recovered/Resolved]
  - Febrile neutropenia [Recovered/Resolved]
  - Periorbital cellulitis [Recovered/Resolved]
  - Vena cava thrombosis [Not Recovered/Not Resolved]
  - Medical device complication [Recovered/Resolved]
  - Abdominal pain [Recovered/Resolved]
  - Off label use [Unknown]
  - Mucosal inflammation [Recovered/Resolved]
